FAERS Safety Report 18752052 (Version 4)
Quarter: 2023Q1

REPORT INFORMATION
  Report Type: Spontaneous
  Country: US (occurrence: US)
  Receive Date: 20210118
  Receipt Date: 20230329
  Transmission Date: 20230417
  Serious: Yes (Hospitalization, Other)
  Sender: FDA-Public Use
  Company Number: US-PFIZER INC-2021014608

PATIENT
  Age: 76 Year
  Sex: Male

DRUGS (1)
  1. XELJANZ [Suspect]
     Active Substance: TOFACITINIB CITRATE
     Indication: Colitis ulcerative
     Dosage: 5 MG

REACTIONS (6)
  - Illness [Unknown]
  - Anal incontinence [Unknown]
  - Dementia [Unknown]
  - Incoherent [Unknown]
  - Pyrexia [Unknown]
  - Dehydration [Unknown]
